FAERS Safety Report 17875964 (Version 3)
Quarter: 2020Q4

REPORT INFORMATION
  Report Type: Report from Study
  Country: US (occurrence: US)
  Receive Date: 20200609
  Receipt Date: 20201229
  Transmission Date: 20210113
  Serious: No
  Sender: FDA-Public Use
  Company Number: NVSC2020US158841

PATIENT
  Age: 68 Year
  Sex: Female

DRUGS (4)
  1. ENTRESTO [Suspect]
     Active Substance: SACUBITRIL\VALSARTAN
     Indication: CARDIAC FAILURE
     Dosage: 1 DF (49.51 MG), BID
     Route: 048
     Dates: start: 201912
  2. ENTRESTO [Suspect]
     Active Substance: SACUBITRIL\VALSARTAN
     Dosage: 1 DF (49.51 MG), BID
     Route: 048
     Dates: start: 20200605
  3. ENTRESTO [Suspect]
     Active Substance: SACUBITRIL\VALSARTAN
     Dosage: 49.51 MG, ONCE2SDO
     Route: 048
     Dates: start: 201912, end: 20200831
  4. ENTRESTO [Suspect]
     Active Substance: SACUBITRIL\VALSARTAN
     Dosage: 1 DF (49/51 MG)
     Route: 048
     Dates: start: 202003

REACTIONS (6)
  - Throat clearing [Unknown]
  - Palpitations [Recovering/Resolving]
  - Muscle spasms [Unknown]
  - Depression [Unknown]
  - Blood pressure diastolic normal [Unknown]
  - Paraesthesia [Unknown]

NARRATIVE: CASE EVENT DATE: 201912
